FAERS Safety Report 5606843-0 (Version None)
Quarter: 2008Q1

REPORT INFORMATION
  Report Type: 
  Country: None (occurrence: None)
  Receive Date: 20080129
  Receipt Date: 20080123
  Transmission Date: 20080703
  Serious: Yes (Hospitalization)
  Sender: FDA-Public Use
  Company Number: AR-BOEHRINGER INGELHEIM GMBH, GERMANY-2008-BP-01074RA

PATIENT
  Age: 91 Year
  Sex: Male

DRUGS (1)
  1. AGGRENOX [Suspect]
     Indication: ISCHAEMIC STROKE
     Route: 048
     Dates: start: 20080114, end: 20080114

REACTIONS (1)
  - MYOCARDIAL INFARCTION [None]
